FAERS Safety Report 8399675-4 (Version None)
Quarter: 2012Q2

REPORT INFORMATION
  Report Type: 
  Country: None (occurrence: None)
  Receive Date: 20120323
  Receipt Date: 20110810
  Transmission Date: 20120825
  Serious: Yes (Hospitalization)
  Sender: FDA-Public Use
  Company Number: 163-21880-11072350

PATIENT
  Age: 68 Year
  Sex: Male

DRUGS (12)
  1. FENOFIBRATE [Concomitant]
  2. FISH OIL (FISH OIL)(UNKNOWN) [Concomitant]
  3. LEVOTHYROXINE SODIUM [Concomitant]
  4. REVLIMID [Suspect]
     Indication: MULTIPLE MYELOMA
     Dosage: 25 MG, QHS X 21 DAY, THEN 7 DAY OFF, PO
     Route: 048
     Dates: start: 20110624, end: 20110628
  5. REVLIMID [Suspect]
     Indication: MULTIPLE MYELOMA
     Dosage: 25 MG, QHS X 21 DAY, THEN 7 DAY OFF, PO
     Route: 048
     Dates: start: 20110704
  6. FINASTERIDE (FINASTERIDE)(UNKNOWN) [Concomitant]
  7. TYLENOL XTRA STRENGTH (PARACETAMOL)(UNKNOWN) [Concomitant]
  8. METOPROLOL ER (METOPROLOL)(UNKNOWN) [Concomitant]
  9. ZOFRAN (ONDANSETRON HYDROCHLORIDE)(8 MILLIGRAM,(UNKNOWN) [Concomitant]
  10. CRESTOR (ROSUVASTATIN)(UNKNOWN) [Concomitant]
  11. TRAMADOL HCL [Concomitant]
  12. DEXAMETHASONE [Concomitant]

REACTIONS (1)
  - APPENDICITIS [None]
